FAERS Safety Report 24390220 (Version 1)
Quarter: 2024Q4

REPORT INFORMATION
  Report Type: Spontaneous
  Country: FR (occurrence: FR)
  Receive Date: 20241003
  Receipt Date: 20241003
  Transmission Date: 20250115
  Serious: Yes (Hospitalization, Other)
  Sender: AUROBINDO
  Company Number: FR-AFSSAPS-CF2024000368

PATIENT
  Age: 91 Year
  Sex: Male
  Weight: 85 kg

DRUGS (3)
  1. FUROSEMIDE [Suspect]
     Active Substance: FUROSEMIDE
     Indication: Oedema
     Dosage: UNK
     Route: 048
     Dates: start: 20240611, end: 20240614
  2. BROMAZEPAM [Concomitant]
     Active Substance: BROMAZEPAM
     Indication: Insomnia
     Dosage: 1 DOSAGE FORM, TWO TIMES A DAY
     Route: 048
     Dates: start: 20240612
  3. JARDIANCE [Concomitant]
     Active Substance: EMPAGLIFLOZIN
     Indication: Cardiac failure
     Dosage: 1 DOSAGE FORM, ONCE A DAY
     Route: 048
     Dates: start: 20240611

REACTIONS (1)
  - Febrile neutropenia [Recovered/Resolved]

NARRATIVE: CASE EVENT DATE: 20240612
